FAERS Safety Report 10329331 (Version 1)
Quarter: 2014Q3

REPORT INFORMATION
  Report Type: Spontaneous
  Country: FR (occurrence: None)
  Receive Date: 20140717
  Receipt Date: 20140717
  Transmission Date: 20150326
  Serious: Yes (Hospitalization)
  Sender: FDA-Public Use
  Company Number: AUR-APL-2014-07485

PATIENT
  Age: 82 Year
  Sex: Female

DRUGS (9)
  1. NEURONTIN [Suspect]
     Active Substance: GABAPENTIN
     Indication: PRODUCT USED FOR UNKNOWN INDICATION
     Route: 048
     Dates: start: 201405, end: 20140606
  2. RENITEC /00574902/ (ENALAPRIL MALEATE) [Concomitant]
  3. SERESTA (OXAZEPAM) [Concomitant]
     Active Substance: OXAZEPAM
  4. ESOMEPRAZOLE SODIUM. [Suspect]
     Active Substance: ESOMEPRAZOLE SODIUM
     Indication: PRODUCT USED FOR UNKNOWN INDICATION
     Route: 048
     Dates: end: 20140623
  5. PAROXETINE [Suspect]
     Active Substance: PAROXETINE\PAROXETINE HYDROCHLORIDE
     Indication: PRODUCT USED FOR UNKNOWN INDICATION
     Route: 048
     Dates: start: 20140429, end: 20140524
  6. SOTALEX (SOTALOL HYDROCHLORIDE) [Concomitant]
     Active Substance: SOTALOL
  7. LOXEN (NICARDINE HYDROCHLORIDE) [Concomitant]
  8. MIANSERIN [Concomitant]
     Active Substance: MIANSERIN
  9. TIORFAN (ACETORPHAN) [Concomitant]

REACTIONS (7)
  - Hypernatraemia [None]
  - Abdominal distension [None]
  - Diarrhoea [None]
  - Colitis microscopic [None]
  - Chest pain [None]
  - Heart sounds abnormal [None]
  - Hypokalaemia [None]

NARRATIVE: CASE EVENT DATE: 20140518
